FAERS Safety Report 8976385 (Version 1)
Quarter: 2012Q4

REPORT INFORMATION
  Report Type: 
  Country: US (occurrence: US)
  Receive Date: 20121220
  Receipt Date: 20121220
  Transmission Date: 20130627
  Serious: Yes (Other)
  Sender: FDA-Public Use
  Company Number: US-PFIZER INC-2012318365

PATIENT
  Age: 53 Year
  Sex: Female

DRUGS (8)
  1. SUMATRIPTAN SUCCINATE [Suspect]
     Indication: CHRONIC HEADACHES
     Dosage: 6 mg, UNK
     Route: 058
  2. SUMATRIPTAN SUCCINATE [Suspect]
     Indication: CHRONIC HEADACHES
     Dosage: 100 mg, UNK
     Route: 048
  3. SUMATRIPTAN SUCCINATE [Suspect]
     Dosage: 50-100mg
     Route: 048
  4. NADOLOL [Suspect]
     Dosage: 20 mg a day
  5. MAGNESIUM [Concomitant]
     Dosage: 250 mg per day
  6. RIBOFLAVIN [Concomitant]
     Indication: PROPHYLAXIS
     Dosage: 100 mg per day
  7. RIBOFLAVIN [Concomitant]
     Dosage: 400mg a day
  8. NAPROXEN SODIUM [Concomitant]
     Dosage: UNK

REACTIONS (10)
  - Chest pain [Recovered/Resolved]
  - Prinzmetal angina [Unknown]
  - Electrocardiogram ST segment abnormal [Unknown]
  - Electrocardiogram T wave abnormal [Unknown]
  - Ventricular tachycardia [Recovered/Resolved]
  - Raynaud^s phenomenon [Unknown]
  - Bradycardia [Unknown]
  - Chronotropic incompetence [Unknown]
  - Hyperhidrosis [Unknown]
  - Hypoaesthesia [Unknown]
